FAERS Safety Report 6187480-9 (Version None)
Quarter: 2009Q2

REPORT INFORMATION
  Report Type: 
  Country: None (occurrence: None)
  Receive Date: 20090508
  Receipt Date: 20090427
  Transmission Date: 20091009
  Serious: Yes (Other)
  Sender: FDA-Public Use
  Company Number: GXKR2009AU05100

PATIENT
  Age: 81 Year
  Sex: Male

DRUGS (1)
  1. PREDNISOLONE [Suspect]
     Indication: HERPES ZOSTER OTICUS
     Dosage: 1 MG/KG; ORAL
     Route: 048

REACTIONS (9)
  - CORNEAL PERFORATION [None]
  - HYPOPYON [None]
  - MYODESOPSIA [None]
  - NECROTISING RETINITIS [None]
  - PSEUDOMONAS INFECTION [None]
  - PUPILLARY REFLEX IMPAIRED [None]
  - ULCERATIVE KERATITIS [None]
  - VISUAL ACUITY REDUCED [None]
  - WOUND EVISCERATION [None]
